FAERS Safety Report 9209861 (Version 1)
Quarter: 2013Q1

REPORT INFORMATION
  Report Type: Spontaneous
  Country: US (occurrence: None)
  Receive Date: 20120820
  Receipt Date: 20120820
  Transmission Date: 20140127
  Serious: No
  Sender: FDA-Public Use
  Company Number: 1000030960

PATIENT
  Age: 73 Year
  Sex: Female

DRUGS (4)
  1. VIIBRYD [Suspect]
     Indication: ANXIETY
     Route: 048
     Dates: start: 20120509
  2. AMLODIPINE (AMLOPIDINE) (AMLODIPINE) [Concomitant]
  3. CRESTOR (ROSUVASTATIN CALCIUM) (ROSUVASTATIN CALCIUM) [Concomitant]
  4. LOSARTAN (LOSARTAN) (LOSARTAN) [Concomitant]

REACTIONS (1)
  - Muscle spasms [None]
